FAERS Safety Report 21889367 (Version 7)
Quarter: 2024Q1

REPORT INFORMATION
  Report Type: Report from Study
  Country: US (occurrence: US)
  Receive Date: 20230120
  Receipt Date: 20240110
  Transmission Date: 20240410
  Serious: No
  Sender: FDA-Public Use
  Company Number: US-002147023-NVSC2023US012964

PATIENT
  Sex: Female

DRUGS (1)
  1. KESIMPTA [Suspect]
     Active Substance: OFATUMUMAB
     Indication: Product used for unknown indication
     Dosage: UNK
     Route: 065

REACTIONS (7)
  - Episcleritis [Unknown]
  - Rash papular [Unknown]
  - Headache [Unknown]
  - Pharyngitis streptococcal [Unknown]
  - COVID-19 [Recovered/Resolved with Sequelae]
  - Cough [Unknown]
  - Sinusitis [Unknown]
